FAERS Safety Report 13191734 (Version 1)
Quarter: 2017Q1

REPORT INFORMATION
  Report Type: Report from Study
  Country: None (occurrence: US)
  Receive Date: 20170207
  Receipt Date: 20170207
  Transmission Date: 20170428
  Serious: Yes (Other)
  Sender: FDA-Public Use
  Company Number: US-ABBVIE-16K-163-1618921-00

PATIENT
  Age: 58 Year
  Sex: Female
  Weight: 69.46 kg

DRUGS (7)
  1. HUMIRA [Suspect]
     Active Substance: ADALIMUMAB
     Dosage: DAY 15
     Route: 058
     Dates: start: 201605, end: 201605
  2. IMODIUM [Concomitant]
     Active Substance: LOPERAMIDE HYDROCHLORIDE
     Indication: DIARRHOEA
  3. HUMIRA [Suspect]
     Active Substance: ADALIMUMAB
     Indication: CROHN^S DISEASE
     Dosage: INITIAL DOSE DAY 1
     Route: 058
     Dates: start: 20160428, end: 20160428
  4. LOSARTAN. [Concomitant]
     Active Substance: LOSARTAN
     Indication: HYPERTENSION
  5. HUMIRA [Suspect]
     Active Substance: ADALIMUMAB
     Route: 058
     Dates: start: 20160526, end: 201606
  6. PRILOSEC [Concomitant]
     Active Substance: OMEPRAZOLE MAGNESIUM
     Indication: GASTROOESOPHAGEAL REFLUX DISEASE
  7. HUMIRA [Suspect]
     Active Substance: ADALIMUMAB
     Route: 058
     Dates: start: 201606

REACTIONS (16)
  - Anxiety [Unknown]
  - Bronchitis [Recovered/Resolved]
  - Medical device site inflammation [Unknown]
  - Frequent bowel movements [Recovering/Resolving]
  - Colitis [Unknown]
  - Abdominal pain [Unknown]
  - Activities of daily living impaired [Unknown]
  - Insomnia [Unknown]
  - Diarrhoea [Recovering/Resolving]
  - Injection site pain [Unknown]
  - Abdominal pain [Unknown]
  - Incorrect dose administered [Unknown]
  - Injection site haematoma [Unknown]
  - Wrong technique in product usage process [Unknown]
  - Pouchitis [Recovering/Resolving]
  - Upper respiratory tract infection [Unknown]

NARRATIVE: CASE EVENT DATE: 2016
